FAERS Safety Report 8231199-7 (Version None)
Quarter: 2012Q1

REPORT INFORMATION
  Report Type: 
  Country: None (occurrence: None)
  Receive Date: 20120323
  Receipt Date: 20120323
  Transmission Date: 20120608
  Serious: No
  Sender: FDA-Public Use
  Company Number: None

PATIENT
  Sex: Female

DRUGS (1)
  1. NUTROPIN AQ PEN [Suspect]

REACTIONS (2)
  - SKIN DISORDER [None]
  - ABDOMINAL PAIN [None]
